FAERS Safety Report 5927409-9 (Version None)
Quarter: 2008Q4

REPORT INFORMATION
  Report Type: 
  Country: None (occurrence: None)
  Receive Date: 20081022
  Receipt Date: 20081022
  Transmission Date: 20090506
  Serious: Yes (Hospitalization, Disabling)
  Sender: FDA-Public Use
  Company Number: None

PATIENT
  Age: 62 Year
  Sex: Female
  Weight: 86.1834 kg

DRUGS (2)
  1. CIPRO [Suspect]
     Indication: INFECTION
  2. LEVAQUIN [Suspect]

REACTIONS (2)
  - DEAFNESS UNILATERAL [None]
  - TENDON RUPTURE [None]
